FAERS Safety Report 10101647 (Version 1)
Quarter: 2014Q2

REPORT INFORMATION
  Report Type: Report from Study
  Country: US (occurrence: US)
  Receive Date: 20140424
  Receipt Date: 20140424
  Transmission Date: 20141212
  Serious: Yes (Hospitalization, Other)
  Sender: FDA-Public Use
  Company Number: US-ROCHE-GNE226865

PATIENT
  Age: 20 Year
  Sex: Female
  Weight: 73.55 kg

DRUGS (11)
  1. OMALIZUMAB [Suspect]
     Indication: ASTHMA
     Dosage: 225 MG, UNK
     Route: 065
     Dates: start: 20040811
  2. ALBUTEROL [Concomitant]
     Indication: ASTHMA
     Dosage: 90 UG, PRN
     Route: 065
  3. ADVAIR [Concomitant]
     Indication: PRODUCT USED FOR UNKNOWN INDICATION
     Dosage: 500 UG, BID
     Route: 065
  4. QVAR [Concomitant]
     Indication: ASTHMA
     Dosage: 80 UG, QHS
     Route: 065
  5. NEXIUM [Concomitant]
     Indication: PRODUCT USED FOR UNKNOWN INDICATION
     Dosage: 40 UG, QD
     Route: 065
  6. PREDNISONE [Concomitant]
     Indication: PRODUCT USED FOR UNKNOWN INDICATION
  7. GAS-X [Concomitant]
     Indication: FLATULENCE
     Dosage: UNK
     Route: 065
  8. TYLENOL [Concomitant]
     Indication: HEADACHE
     Dosage: UNK
     Route: 065
  9. COLACE [Concomitant]
     Indication: PRODUCT USED FOR UNKNOWN INDICATION
     Dosage: UNK
     Route: 065
  10. ALLERGY SHOTS [Concomitant]
     Indication: HYPERSENSITIVITY
  11. CLARITIN [Concomitant]
     Indication: HYPERSENSITIVITY

REACTIONS (6)
  - Arrested labour [Recovered/Resolved]
  - Exposure during pregnancy [Unknown]
  - Haemoglobin decreased [Unknown]
  - Vaginal haemorrhage [Unknown]
  - Complication of delivery [Unknown]
  - Caesarean section [Unknown]
